FAERS Safety Report 7403414-0 (Version None)
Quarter: 2011Q1

REPORT INFORMATION
  Report Type: 
  Country: None (occurrence: None)
  Receive Date: 20110330
  Receipt Date: 20110325
  Transmission Date: 20110831
  Serious: Yes (Other)
  Sender: FDA-Public Use
  Company Number: CIP11000774

PATIENT
  Age: 71 Year
  Sex: Female

DRUGS (3)
  1. CALCIUM WITH VITAMIN D /00944301/ (CALCIUM CARBONATE, COLECALCIFEROL) [Concomitant]
  2. MINERALS NOS (MINERALS NOS) [Concomitant]
  3. ACTONEL [Suspect]
     Dosage: UNKNOWN DOSAGE AND REGIMENM ORAL
     Route: 048

REACTIONS (3)
  - ARTHROPATHY [None]
  - FOOT DEFORMITY [None]
  - MUSCULOSKELETAL PAIN [None]
